FAERS Safety Report 25869506 (Version 1)
Quarter: 2025Q4

REPORT INFORMATION
  Report Type: Spontaneous
  Country: US (occurrence: US)
  Receive Date: 20251001
  Receipt Date: 20251001
  Transmission Date: 20260117
  Serious: No
  Sender: RECKITT BENCKISER
  Company Number: US-INDIVIOR US-INDV-156875-2024

PATIENT
  Age: 49 Year
  Sex: Male

DRUGS (43)
  1. SUBOXONE [Suspect]
     Active Substance: BUPRENORPHINE HYDROCHLORIDE\NALOXONE HYDROCHLORIDE
     Indication: Drug dependence
     Dosage: 16 MILLIGRAM, QD
     Route: 065
     Dates: start: 201901
  2. SUBOXONE [Suspect]
     Active Substance: BUPRENORPHINE HYDROCHLORIDE\NALOXONE HYDROCHLORIDE
     Dosage: 8 MILLIGRAM, BID (ONE IN THE MORNING AND ONE AT NIGHT TIME)
     Route: 060
     Dates: start: 202109
  3. SUBOXONE [Suspect]
     Active Substance: BUPRENORPHINE HYDROCHLORIDE\NALOXONE HYDROCHLORIDE
     Dosage: 8 MILLIGRAM, TID (MORNING, NOON, AND NIGHT ONE FILM EACH TIME)
     Route: 060
     Dates: start: 202301
  4. SUBOXONE [Suspect]
     Active Substance: BUPRENORPHINE HYDROCHLORIDE\NALOXONE HYDROCHLORIDE
     Indication: Drug dependence
     Dosage: 4 MILLIGRAM, QD
     Route: 065
     Dates: start: 201901, end: 201901
  5. NARCAN [Concomitant]
     Active Substance: NALOXONE HYDROCHLORIDE
     Indication: Product used for unknown indication
     Dosage: 4 MILLIGRAM, NASAL SPRAY
     Route: 045
     Dates: start: 201904
  6. SERTRALINE [Concomitant]
     Active Substance: SERTRALINE HYDROCHLORIDE
     Indication: Product used for unknown indication
     Dosage: UNK
     Route: 065
  7. TAMSULOSIN [Concomitant]
     Active Substance: TAMSULOSIN
     Indication: Product used for unknown indication
     Dosage: 0.4 MILLIGRAM, CAPSULE
     Route: 048
     Dates: start: 201903, end: 202209
  8. MELOXICAM [Concomitant]
     Active Substance: MELOXICAM
     Indication: Product used for unknown indication
     Dosage: 7.5 MILLIGRAM, QD, 1 TABLET
     Route: 048
     Dates: start: 201903
  9. QUETIAPINE FUMARATE [Concomitant]
     Active Substance: QUETIAPINE FUMARATE
     Indication: Product used for unknown indication
     Dosage: 50 MILLIGRAM, HS, 1 TABLET
     Route: 048
     Dates: start: 201906
  10. SUMATRIPTAN SUCCINATE [Concomitant]
     Active Substance: SUMATRIPTAN SUCCINATE
     Indication: Migraine
     Dosage: 50 MILLIGRAM, PRN (ONE TABLET AT ONSET OF MIGRAINE, IF SYMPTOMS PERSIST TAKE SECOND DOSE)
     Route: 048
     Dates: start: 201907
  11. CYCLOBENZAPRINE [Concomitant]
     Active Substance: CYCLOBENZAPRINE
     Indication: Muscle spasms
     Dosage: 10 MILLIGRAM, QD (NIGHT), 1 TABLET
     Route: 048
     Dates: start: 202006
  12. CYCLOBENZAPRINE [Concomitant]
     Active Substance: CYCLOBENZAPRINE
     Indication: Back pain
     Dosage: 10 MILLIGRAM (2 TABLETS), TID, AS NEEDED
     Route: 048
     Dates: start: 202211
  13. CYCLOBENZAPRINE [Concomitant]
     Active Substance: CYCLOBENZAPRINE
     Dosage: 10 MILLIGRAM, QD
     Route: 048
     Dates: start: 202306
  14. AMITRIPTYLINE [Concomitant]
     Active Substance: AMITRIPTYLINE
     Indication: Product used for unknown indication
     Dosage: 25 MILLIGRAM, QD (NIGHT), 1 TABLET
     Route: 048
     Dates: start: 202006
  15. NAPROXEN [Concomitant]
     Active Substance: NAPROXEN
     Indication: Pain in extremity
     Dosage: 500 MILLIGRAM, BID
     Route: 048
     Dates: start: 201607
  16. NAPROXEN [Concomitant]
     Active Substance: NAPROXEN
     Indication: Headache
  17. TOPIRAMATE [Concomitant]
     Active Substance: TOPIRAMATE
     Indication: Product used for unknown indication
     Dosage: 25 MILLIGRAM, QD (BEDTIME)
     Route: 048
     Dates: start: 202010, end: 202010
  18. TOPIRAMATE [Concomitant]
     Active Substance: TOPIRAMATE
     Dosage: 25 MILLIGRAM, BID
     Route: 048
     Dates: start: 202010, end: 202010
  19. TOPIRAMATE [Concomitant]
     Active Substance: TOPIRAMATE
     Dosage: 75 MILLIGRAM, (1 CAPSULE AT MORNING AND 2 AT BEDTIME)
     Route: 048
     Dates: start: 202010
  20. DOXYCYCLINE [Concomitant]
     Active Substance: DOXYCYCLINE
     Indication: Product used for unknown indication
     Dosage: 100 MILLIGRAM, BID, 1 CAPSULE
     Route: 048
     Dates: start: 202109, end: 202109
  21. DICLOFENAC [Concomitant]
     Active Substance: DICLOFENAC
     Indication: Product used for unknown indication
     Dosage: DICLOFENAC 1 PERCENT GEL, 2 GRAM, TID
     Route: 065
     Dates: start: 202109
  22. DICLOFENAC [Concomitant]
     Active Substance: DICLOFENAC
     Dosage: 75 MILLIGRAM, BID, TABLET
     Route: 048
     Dates: start: 202306
  23. SILDENAFIL [Concomitant]
     Active Substance: SILDENAFIL
     Indication: Product used for unknown indication
     Dosage: 50 MILLIGRAM, PRN
     Route: 048
     Dates: start: 202109
  24. NICOTINE [Concomitant]
     Active Substance: NICOTINE
     Indication: Product used for unknown indication
     Dosage: NICOTINE TRANSDERMAL PATCH 21 MILLIGRAM/ 24 HDIS, QD (1 PATCH EVERYDAY)
     Route: 062
     Dates: start: 202110
  25. BUPROPION HYDROCHLORIDE XL [Concomitant]
     Active Substance: BUPROPION HYDROCHLORIDE
     Indication: Product used for unknown indication
     Dosage: 150 MILLIGRAM, QD, 1 TABLET
     Route: 048
     Dates: start: 202110
  26. ESCITALOPRAM [Concomitant]
     Active Substance: ESCITALOPRAM OXALATE
     Indication: Product used for unknown indication
     Dosage: 10 MILLIGRAM, QD, 1 TABLET
     Route: 048
     Dates: start: 202111
  27. ACETAMINOPHEN [Concomitant]
     Active Substance: ACETAMINOPHEN
     Indication: Pain
     Dosage: 500 MILLIGRAM, Q4H, AS NEEDED
     Route: 048
     Dates: start: 202210
  28. IBUPROFEN [Concomitant]
     Active Substance: IBUPROFEN
     Indication: Pain
     Dosage: 400 MILLIGRAM, Q6H, AS NEEDED
     Route: 048
     Dates: start: 202210
  29. METHOCARBAMOL [Concomitant]
     Active Substance: METHOCARBAMOL
     Indication: Product used for unknown indication
     Dosage: 500 MILLIGRAM, QID (MORNING, AFTERNOON, EVENING, AND NIGHT EACH ONE TABLET)
     Route: 048
     Dates: start: 202210
  30. PREDNISONE [Concomitant]
     Active Substance: PREDNISONE
     Indication: Product used for unknown indication
     Dosage: 20 MILLIGRAM, UNKNOWN
     Route: 048
     Dates: start: 201812
  31. PREDNISONE [Concomitant]
     Active Substance: PREDNISONE
     Dosage: 10 MILLIGRAM, UNKNOWN
     Route: 065
     Dates: start: 202006
  32. PREDNISONE [Concomitant]
     Active Substance: PREDNISONE
     Dosage: 60 MILLIGRAM, (06 TABLETS ON DAY 01) 10 MG TABLET
     Route: 065
     Dates: start: 202211, end: 202211
  33. PREDNISONE [Concomitant]
     Active Substance: PREDNISONE
     Dosage: 50 MILLIGRAM, (5  TABLETS ON DAY 02) 10 MG TABLET
     Route: 065
     Dates: start: 202211, end: 202211
  34. PREDNISONE [Concomitant]
     Active Substance: PREDNISONE
     Dosage: 40 MILLIGRAM, (4 TABLETS ON DAY 03) 10 MG TABLET
     Route: 065
     Dates: start: 202211, end: 202211
  35. PREDNISONE [Concomitant]
     Active Substance: PREDNISONE
     Dosage: 30 MILLIGRAM, (3 TABLETS ON DAY 04) 10 MG TABLET
     Route: 065
     Dates: start: 202211, end: 202211
  36. PREDNISONE [Concomitant]
     Active Substance: PREDNISONE
     Dosage: 20 MILLIGRAM, (2 TABLETS ON DAY 05) 10 MG TABLET
     Route: 065
     Dates: start: 202211, end: 202211
  37. PREDNISONE [Concomitant]
     Active Substance: PREDNISONE
     Dosage: 10 MILLIGRAM, (1 TABLET ON DAY 06) 10 MG TABLET
     Route: 065
     Dates: start: 202211
  38. PREDNISONE [Concomitant]
     Active Substance: PREDNISONE
     Dosage: 60 MILLIGRAM, QD (FOR 3 DAYS)
     Route: 065
     Dates: start: 202211, end: 202211
  39. PREDNISONE [Concomitant]
     Active Substance: PREDNISONE
     Dosage: 40 MILLIGRAM, QD (FOR 4 DAYS)
     Route: 065
     Dates: start: 202211
  40. PREDNISONE [Concomitant]
     Active Substance: PREDNISONE
     Dosage: 20 MILLIGRAM, QD (FOR FOUR DAYS)
     Route: 065
     Dates: start: 202211
  41. PREDNISONE [Concomitant]
     Active Substance: PREDNISONE
     Dosage: 10 MILLIGRAM, QD (HALF TABLET)
     Route: 065
     Dates: start: 202211
  42. GABAPENTIN [Concomitant]
     Active Substance: GABAPENTIN
     Indication: Product used for unknown indication
     Dosage: 30 MILLIGRAM, TID (MORNING, AFTERNOON, AND NIGHT EACH TIME 1 CAPSULE)
     Route: 048
     Dates: start: 202211
  43. METHYLPREDNISOLONE [Concomitant]
     Active Substance: METHYLPREDNISOLONE
     Indication: Product used for unknown indication
     Dosage: 4 MILLIGRAM, UNKNOWN
     Route: 048
     Dates: start: 202405, end: 202405

REACTIONS (6)
  - Periodontitis [Not Recovered/Not Resolved]
  - Hernia [Unknown]
  - Dental caries [Unknown]
  - Tooth erosion [Unknown]
  - Tooth loss [Unknown]
  - Inappropriate schedule of product administration [Unknown]

NARRATIVE: CASE EVENT DATE: 20210901
